FAERS Safety Report 5581051-0 (Version None)
Quarter: 2007Q4

REPORT INFORMATION
  Report Type: 
  Country: None (occurrence: None)
  Receive Date: 20071227
  Receipt Date: 20071218
  Transmission Date: 20080405
  Serious: Yes (Hospitalization, Other)
  Sender: FDA-Public Use
  Company Number: 2007SP025127

PATIENT
  Age: 45 Year
  Sex: 0
  Weight: 88.4514 kg

DRUGS (9)
  1. PEGETRON (PEGINTERFERON ALFA-2B W/RIBAVIRIN)(PEGYLATED INTERFERON ALFA [Suspect]
     Indication: HEPATITIS C
     Dosage: 150 MCG; QW; SC; 1200 MG ; QD; PO
     Route: 058
     Dates: start: 20070601, end: 20071207
  2. PEGETRON (PEGINTERFERON ALFA-2B W/RIBAVIRIN)(PEGYLATED INTERFERON ALFA [Suspect]
     Indication: HEPATITIS C
     Dosage: 150 MCG; QW; SC; 1200 MG ; QD; PO
     Route: 058
     Dates: start: 20070601, end: 20071218
  3. DIOVAN [Concomitant]
  4. PAXIL [Concomitant]
  5. EFFEXOR [Concomitant]
  6. HYDROCHLOROTHIAZIDE [Concomitant]
  7. TOMAZEPAM [Concomitant]
  8. NORVASC [Concomitant]
  9. ATIVAN [Concomitant]

REACTIONS (6)
  - BACK PAIN [None]
  - BLOOD CREATININE INCREASED [None]
  - BLOOD URIC ACID INCREASED [None]
  - DYSPNOEA [None]
  - MUSCULOSKELETAL PAIN [None]
  - PULMONARY EMBOLISM [None]
